FAERS Safety Report 18031839 (Version 2)
Quarter: 2020Q3

REPORT INFORMATION
  Report Type: Spontaneous
  Country: CZ (occurrence: CZ)
  Receive Date: 20200716
  Receipt Date: 20200909
  Transmission Date: 20201103
  Serious: Yes (Other)
  Sender: FDA-Public Use
  Company Number: NVSC2020CZ166842

PATIENT
  Age: 56 Year
  Sex: Male

DRUGS (2)
  1. ROSUVASTATIN. [Suspect]
     Active Substance: ROSUVASTATIN
     Route: 065
  2. ROSUVASTATIN. [Suspect]
     Active Substance: ROSUVASTATIN
     Indication: HYPERCHOLESTEROLAEMIA
     Dosage: 20 MG ONCE DAILY DOSAGE WAS REDUCED TO 10 MG DAILY
     Route: 048
     Dates: start: 2015

REACTIONS (11)
  - Performance status decreased [Unknown]
  - Muscle strength abnormal [Recovered/Resolved]
  - Loss of personal independence in daily activities [Unknown]
  - Drug ineffective [Unknown]
  - Muscular weakness [Recovered/Resolved]
  - Muscle fatigue [Recovered/Resolved with Sequelae]
  - Drug intolerance [Unknown]
  - Therapeutic product effect incomplete [Unknown]
  - Blood creatine phosphokinase increased [Recovered/Resolved]
  - Muscle discomfort [Recovered/Resolved]
  - Myalgia [Recovered/Resolved]
